FAERS Safety Report 10204816 (Version 1)
Quarter: 2014Q2

REPORT INFORMATION
  Report Type: Spontaneous
  Country: CZ (occurrence: None)
  Receive Date: 20140527
  Receipt Date: 20140527
  Transmission Date: 20141212
  Serious: Yes (Other)
  Sender: FDA-Public Use
  Company Number: SIM_00574_2014

PATIENT
  Age: 20 Year
  Sex: Female

DRUGS (1)
  1. SIMILASAN [Suspect]
     Indication: DRY EYE
     Dosage: NI/NI/ OPHTHALMIC
     Route: 047
     Dates: start: 201311, end: 20131218

REACTIONS (5)
  - Drug hypersensitivity [None]
  - Angioedema [None]
  - Feeling hot [None]
  - Pruritus [None]
  - Erythema [None]
